FAERS Safety Report 13844321 (Version 2)
Quarter: 2017Q3

REPORT INFORMATION
  Report Type: Spontaneous
  Country: US (occurrence: US)
  Receive Date: 20170808
  Receipt Date: 20170831
  Transmission Date: 20171127
  Serious: No
  Sender: FDA-Public Use
  Company Number: US-PFIZER INC-2017339474

PATIENT
  Age: 37 Year
  Sex: Male
  Weight: 59 kg

DRUGS (9)
  1. NALOXONE HCL [Suspect]
     Active Substance: NALOXONE HYDROCHLORIDE
     Indication: DRUG ABUSE
     Dosage: 2 MG, SINGLE
     Route: 042
     Dates: start: 20170704, end: 20170704
  2. SODIUM CHLORIDE. [Suspect]
     Active Substance: SODIUM CHLORIDE
     Dosage: 1000 ML, UNK
     Route: 042
     Dates: start: 20170704, end: 20170704
  3. NARCAN [Suspect]
     Active Substance: NALOXONE HYDROCHLORIDE
     Indication: DRUG ABUSE
     Dosage: UNK (4 MG /0.1 ML)
     Dates: start: 20170704, end: 20170704
  4. NALOXONE HCL [Suspect]
     Active Substance: NALOXONE HYDROCHLORIDE
     Indication: ALCOHOL POISONING
  5. REGLAN [Suspect]
     Active Substance: METOCLOPRAMIDE HYDROCHLORIDE
     Indication: ALCOHOL POISONING
     Dosage: 10 MG, UNK
     Route: 042
     Dates: start: 20170704
  6. BENADRYL [Suspect]
     Active Substance: DIPHENHYDRAMINE HYDROCHLORIDE
     Indication: ALCOHOL POISONING
     Dosage: 25 MG, UNK
     Route: 042
     Dates: start: 20170704
  7. SODIUM CHLORIDE. [Suspect]
     Active Substance: SODIUM CHLORIDE
     Indication: ALCOHOL POISONING
     Dosage: 1000 ML, UNK
     Route: 042
     Dates: start: 20170704, end: 20170704
  8. ETHYL ALCOHOL [Suspect]
     Active Substance: ALCOHOL
     Dosage: UNK (FOUR SHOTS OF RUM)
     Route: 048
     Dates: start: 20170704, end: 20170704
  9. ZOFRAN [Suspect]
     Active Substance: ONDANSETRON HYDROCHLORIDE
     Indication: ALCOHOL POISONING
     Dosage: 4 MG, UNK
     Route: 042
     Dates: start: 20170704

REACTIONS (5)
  - Cardiac disorder [Unknown]
  - Therapeutic response unexpected [Unknown]
  - Blood pressure decreased [Unknown]
  - Anger [Unknown]
  - Pre-existing condition improved [Unknown]

NARRATIVE: CASE EVENT DATE: 20170704
